FAERS Safety Report 10217217 (Version 20)
Quarter: 2020Q1

REPORT INFORMATION
  Report Type: Report from Study
  Country: US (occurrence: US)
  Receive Date: 20140604
  Receipt Date: 20200108
  Transmission Date: 20200409
  Serious: Yes (Hospitalization, Other)
  Sender: FDA-Public Use
  Company Number: US-SANOFI-AVENTIS-2013SA090292

PATIENT
  Age: 53 Year
  Sex: Female
  Weight: 48 kg

DRUGS (16)
  1. TERIFLUNOMIDE. [Suspect]
     Active Substance: TERIFLUNOMIDE
     Dosage: 7 MG,QD
     Route: 048
     Dates: start: 2011
  2. TERIFLUNOMIDE. [Suspect]
     Active Substance: TERIFLUNOMIDE
     Dosage: 14 MG,QD
     Route: 048
     Dates: start: 20130825, end: 2014
  3. TERIFLUNOMIDE. [Suspect]
     Active Substance: TERIFLUNOMIDE
     Dosage: 14 MG, QD
     Route: 048
  4. TERIFLUNOMIDE. [Suspect]
     Active Substance: TERIFLUNOMIDE
     Dosage: 14 MG,QD
     Route: 048
     Dates: start: 20100501
  5. TERIFLUNOMIDE. [Suspect]
     Active Substance: TERIFLUNOMIDE
     Dosage: 7 MG,QD
     Route: 048
     Dates: start: 20120101, end: 20121101
  6. BENADRYL [Concomitant]
     Active Substance: DIPHENHYDRAMINE HYDROCHLORIDE
     Dosage: UNK UNK,BID
  7. AVONEX [Concomitant]
     Active Substance: INTERFERON BETA-1A
     Dosage: UNK
     Dates: start: 20030101, end: 20030601
  8. REBIF [Concomitant]
     Active Substance: INTERFERON BETA-1A
     Dosage: UNK
     Dates: start: 20030601, end: 20080101
  9. TERIFLUNOMIDE. [Suspect]
     Active Substance: TERIFLUNOMIDE
     Dosage: 14 MG,QD
     Route: 048
     Dates: start: 20140128
  10. INTERFERON BETA-1B [Concomitant]
     Active Substance: INTERFERON BETA-1B
     Dosage: UNK
  11. TERIFLUNOMIDE. [Suspect]
     Active Substance: TERIFLUNOMIDE
     Indication: MULTIPLE SCLEROSIS
     Dosage: 14 MG,QD
     Route: 048
     Dates: start: 2009, end: 20100501
  12. TERIFLUNOMIDE. [Suspect]
     Active Substance: TERIFLUNOMIDE
     Dosage: 14 MG,QD
     Route: 048
     Dates: start: 2016, end: 20160716
  13. COPAXONE [Concomitant]
     Active Substance: GLATIRAMER ACETATE
     Dosage: UNK
  14. TERIFLUNOMIDE. [Suspect]
     Active Substance: TERIFLUNOMIDE
     Dosage: 14 MG,QD
     Route: 048
     Dates: start: 20150825, end: 20151102
  15. TERIFLUNOMIDE. [Suspect]
     Active Substance: TERIFLUNOMIDE
     Dosage: 14 MG,QD
     Route: 048
  16. MORPHINE [Concomitant]
     Active Substance: MORPHINE
     Dosage: UNK

REACTIONS (106)
  - Vomiting [Not Recovered/Not Resolved]
  - Seizure [Unknown]
  - Joint dislocation [Unknown]
  - Empyema [Recovered/Resolved]
  - Diarrhoea [Not Recovered/Not Resolved]
  - Therapeutic response unexpected [Unknown]
  - Increased appetite [Unknown]
  - Cognitive disorder [Unknown]
  - Concussion [Unknown]
  - Abdominal pain upper [Not Recovered/Not Resolved]
  - Chills [Not Recovered/Not Resolved]
  - Pain [Unknown]
  - Movement disorder [Recovered/Resolved]
  - Fatigue [Not Recovered/Not Resolved]
  - Weight increased [Recovering/Resolving]
  - Pressure of speech [Unknown]
  - Emotional distress [Unknown]
  - Depression [Unknown]
  - Abdominal distension [Not Recovered/Not Resolved]
  - Abdominal pain upper [Recovering/Resolving]
  - Hypotension [Not Recovered/Not Resolved]
  - Cholelithiasis [Unknown]
  - Nerve compression [Unknown]
  - Fear [Not Recovered/Not Resolved]
  - Agoraphobia [Unknown]
  - Chromaturia [Recovering/Resolving]
  - Pyrexia [Not Recovered/Not Resolved]
  - Gastrointestinal pain [Not Recovered/Not Resolved]
  - Post-traumatic neck syndrome [Unknown]
  - Body mass index increased [Not Recovered/Not Resolved]
  - Rash [Recovered/Resolved]
  - Bronchitis [Unknown]
  - Hepatic failure [Not Recovered/Not Resolved]
  - Immunodeficiency [Unknown]
  - Starvation [Unknown]
  - Feeling abnormal [Not Recovered/Not Resolved]
  - Multiple sclerosis [Not Recovered/Not Resolved]
  - Feeling of body temperature change [Not Recovered/Not Resolved]
  - Visual impairment [Recovering/Resolving]
  - Clumsiness [Unknown]
  - Liver disorder [Not Recovered/Not Resolved]
  - Bilirubinuria [Unknown]
  - Road traffic accident [Recovered/Resolved]
  - Arthropod bite [Recovered/Resolved]
  - Drug interaction [Unknown]
  - Colitis [Not Recovered/Not Resolved]
  - Chest pain [Recovered/Resolved]
  - Loss of consciousness [Unknown]
  - Tremor [Not Recovered/Not Resolved]
  - Stress [Not Recovered/Not Resolved]
  - Emotional distress [Not Recovered/Not Resolved]
  - Deafness unilateral [Not Recovered/Not Resolved]
  - Withdrawal syndrome [Not Recovered/Not Resolved]
  - Decreased appetite [Not Recovered/Not Resolved]
  - Sensory loss [Not Recovered/Not Resolved]
  - Skin reaction [Unknown]
  - Hair texture abnormal [Unknown]
  - Vitamin D abnormal [Not Recovered/Not Resolved]
  - Blood bilirubin increased [Not Recovered/Not Resolved]
  - Drug hypersensitivity [Not Recovered/Not Resolved]
  - Hepatic enzyme increased [Not Recovered/Not Resolved]
  - Blood pressure increased [Not Recovered/Not Resolved]
  - Alopecia [Unknown]
  - Malaise [Not Recovered/Not Resolved]
  - Skin discolouration [Not Recovered/Not Resolved]
  - Nausea [Not Recovered/Not Resolved]
  - Pyrexia [Not Recovered/Not Resolved]
  - Memory impairment [Not Recovered/Not Resolved]
  - Agitation [Unknown]
  - Obsessive-compulsive personality disorder [Unknown]
  - Rheumatoid factor increased [Not Recovered/Not Resolved]
  - Weight decreased [Unknown]
  - Deep vein thrombosis [Unknown]
  - Gastrointestinal disorder [Not Recovered/Not Resolved]
  - Pulmonary congestion [Unknown]
  - Near death experience [Unknown]
  - Metal poisoning [Not Recovered/Not Resolved]
  - Spinal column injury [Unknown]
  - General physical health deterioration [Unknown]
  - Cerebral disorder [Not Recovered/Not Resolved]
  - Insomnia [Not Recovered/Not Resolved]
  - Sensory disturbance [Not Recovered/Not Resolved]
  - Fall [Unknown]
  - Abdominal pain [Unknown]
  - Weight decreased [Not Recovered/Not Resolved]
  - Unevaluable event [Unknown]
  - Pancreatitis [Not Recovered/Not Resolved]
  - Faeces discoloured [Unknown]
  - Balance disorder [Recovered/Resolved]
  - Tunnel vision [Unknown]
  - Simple partial seizures [Unknown]
  - Haematochezia [Not Recovered/Not Resolved]
  - Drug detoxification [Not Recovered/Not Resolved]
  - Anxiety [Unknown]
  - Asthenia [Not Recovered/Not Resolved]
  - Pneumonia [Unknown]
  - Gastroenteritis viral [Not Recovered/Not Resolved]
  - Restlessness [Unknown]
  - Abdominal pain lower [Unknown]
  - Amnesia [Not Recovered/Not Resolved]
  - Taste disorder [Unknown]
  - Sleep disorder [Not Recovered/Not Resolved]
  - Immune system disorder [Unknown]
  - Balance disorder [Not Recovered/Not Resolved]
  - Upper respiratory tract infection [Unknown]
  - White blood cell count decreased [Unknown]

NARRATIVE: CASE EVENT DATE: 201505
